FAERS Safety Report 10110939 (Version 1)
Quarter: 2014Q2

REPORT INFORMATION
  Report Type: Spontaneous
  Country: US (occurrence: None)
  Receive Date: 20140424
  Receipt Date: 20140424
  Transmission Date: 20141212
  Serious: Yes (Disabling)
  Sender: FDA-Public Use
  Company Number: None

PATIENT
  Age: 58 Year
  Sex: Female
  Weight: 89.81 kg

DRUGS (1)
  1. LINZESS [Suspect]
     Indication: CONSTIPATION
     Dosage: 1 CAPSULE ONCE DAILE
     Route: 048
     Dates: start: 20140217, end: 20140401

REACTIONS (7)
  - Diarrhoea [None]
  - Nausea [None]
  - Vomiting [None]
  - Muscle spasms [None]
  - Hyperhidrosis [None]
  - Vertigo [None]
  - Syncope [None]
